FAERS Safety Report 25702209 (Version 1)
Quarter: 2025Q3

REPORT INFORMATION
  Report Type: Spontaneous
  Country: MX (occurrence: MX)
  Receive Date: 20250819
  Receipt Date: 20250819
  Transmission Date: 20251020
  Serious: Yes (Hospitalization, Other)
  Sender: SANDOZ
  Company Number: MX-002147023-NVSC2025MX122873

PATIENT
  Age: 77 Year
  Sex: Male
  Weight: 64 kg

DRUGS (4)
  1. LEVOFLOXACIN [Suspect]
     Active Substance: LEVOFLOXACIN
     Indication: Prostatic operation
     Dosage: 1 DOSAGE FORM (TABLET), Q12H
     Route: 048
  2. METFORMIN [Suspect]
     Active Substance: METFORMIN HYDROCHLORIDE
     Indication: Diabetes mellitus inadequate control
     Dosage: 1 DOSAGE FORM (TABLET), Q24H
     Route: 048
     Dates: start: 202502
  3. TASIGNA [Suspect]
     Active Substance: NILOTINIB
     Indication: Chronic myeloid leukaemia
     Dosage: 1 DOSAGE FORM, BID (200MG) (IN THE  MORNING AND IN THE AFTERNOON)
     Route: 048
  4. ACETAMINOPHEN [Concomitant]
     Active Substance: ACETAMINOPHEN
     Indication: Prostatic operation
     Dosage: 1 DOSAGE FORM, Q8H (TABLET)
     Route: 048
     Dates: start: 20250723, end: 20250810

REACTIONS (4)
  - Benign prostatic hyperplasia [Recovering/Resolving]
  - Diabetes mellitus [Unknown]
  - Diabetes mellitus inadequate control [Recovering/Resolving]
  - Underweight [Recovering/Resolving]

NARRATIVE: CASE EVENT DATE: 20250201
